FAERS Safety Report 4480798-7 (Version None)
Quarter: 2004Q4

REPORT INFORMATION
  Report Type: 
  Country: None (occurrence: None)
  Receive Date: 20041019
  Receipt Date: 20041008
  Transmission Date: 20050328
  Serious: Yes (Other)
  Sender: FDA-Public Use
  Company Number: 2004235359US

PATIENT
  Age: 67 Year
  Sex: Female
  Weight: 81.6 kg

DRUGS (4)
  1. BEXTRA [Suspect]
     Indication: ARTHRITIS
     Dosage: 10 MG, QD, ORAL
     Route: 048
     Dates: start: 20040830, end: 20040901
  2. NORVASC [Concomitant]
  3. CLONIDINE HCL [Concomitant]
  4. MAXZIDE [Concomitant]

REACTIONS (4)
  - ANEURYSM [None]
  - ARTHRALGIA [None]
  - CONDITION AGGRAVATED [None]
  - DYSPEPSIA [None]
